FAERS Safety Report 6716235-9 (Version None)
Quarter: 2010Q2

REPORT INFORMATION
  Report Type: 
  Country: None (occurrence: None)
  Receive Date: 20100506
  Receipt Date: 20100506
  Transmission Date: 20101027
  Serious: Yes (Life-Threatening, Hospitalization)
  Sender: FDA-Public Use
  Company Number: None

PATIENT
  Age: 45 Year
  Sex: Female
  Weight: 66 kg

DRUGS (2)
  1. TRI-SPRINTEC - EE / NORGESTIMATE - 35MCG/ 0.18MG, 0.21BARR 5MG/ 0.25MG [Suspect]
     Indication: MENORRHAGIA
     Dosage: 1 TAB DAILY PO
     Route: 048
     Dates: start: 20091210, end: 20100222
  2. . [Concomitant]

REACTIONS (1)
  - DEEP VEIN THROMBOSIS [None]
